FAERS Safety Report 5347895-5 (Version None)
Quarter: 2007Q2

REPORT INFORMATION
  Report Type: 
  Country: None (occurrence: None)
  Receive Date: 20070516
  Receipt Date: 20060914
  Transmission Date: 20071010
  Serious: Yes (Other)
  Sender: FDA-Public Use
  Company Number: 06-001021

PATIENT
  Age: 41 Year
  Sex: Female
  Weight: 65.8 kg

DRUGS (2)
  1. FEMRING [Suspect]
     Indication: HOT FLUSH
     Dosage: 0.1 MG, QD, VAGINAL
     Route: 067
     Dates: start: 20060522, end: 20060822
  2. FEMRING [Suspect]
     Indication: SUICIDAL IDEATION
     Dosage: 0.1 MG, QD, VAGINAL
     Route: 067
     Dates: start: 20060522, end: 20060822

REACTIONS (1)
  - BLINDNESS [None]
